FAERS Safety Report 23429341 (Version 1)
Quarter: 2024Q1

REPORT INFORMATION
  Report Type: Spontaneous
  Country: PK (occurrence: PK)
  Receive Date: 20240122
  Receipt Date: 20240122
  Transmission Date: 20240410
  Serious: Yes (Other)
  Sender: FDA-Public Use
  Company Number: PK-PFIZER INC-PV202300160405

PATIENT
  Age: 41 Year
  Sex: Male
  Weight: 110 kg

DRUGS (7)
  1. IXIFI [Suspect]
     Active Substance: INFLIXIMAB-QBTX
     Indication: Colitis ulcerative
     Dosage: 100MG (5), 0,2, 6 THEN 8 WEEKLY
     Route: 042
     Dates: start: 20230923
  2. IXIFI [Suspect]
     Active Substance: INFLIXIMAB-QBTX
     Dosage: 400 MG EVERY 8 WEEKS
     Route: 042
  3. MASACOL [Concomitant]
     Dosage: 800 MG 2+1+1IN MORNING, AFTERNOON AND EVENING 60 DAYS CONSUME AFTER MEAL
  4. METRONIDAZOLE BENZOATE [Concomitant]
     Active Substance: METRONIDAZOLE BENZOATE
     Dosage: 400 MG 1+1+1 IN MORNING, AFTERNOON AND EVENING 7 DAYS CONSUME AFTER MEAL
  5. CIPROFLOXACIN HYDROCHLORIDE [Concomitant]
     Active Substance: CIPROFLOXACIN HYDROCHLORIDE
     Dosage: 500 MG 1+1 IN MORNING AND EVENING 7 DAYS CONSUME AFTER MEAL
  6. FEROSOFT [Concomitant]
     Dosage: 1 TAB IN MORNING 60 DAYS CONSUME AFTER MEAL
  7. QALSAN D [Concomitant]
     Dosage: 1+1 IN MORNING AND EVENING, CONTINUE CONSUME AFTER MEAL

REACTIONS (2)
  - Rectal haemorrhage [Recovered/Resolved]
  - Off label use [Unknown]

NARRATIVE: CASE EVENT DATE: 20230923
